FAERS Safety Report 20080720 (Version 4)
Quarter: 2022Q1

REPORT INFORMATION
  Report Type: Report from Study
  Country: CN (occurrence: CN)
  Receive Date: 20211117
  Receipt Date: 20220128
  Transmission Date: 20220423
  Serious: Yes (Death, Hospitalization)
  Sender: FDA-Public Use
  Company Number: CN-PFIZER INC-202101578799

PATIENT
  Age: 67 Year
  Sex: Male
  Weight: 51 kg

DRUGS (17)
  1. PACLITAXEL [Suspect]
     Active Substance: PACLITAXEL
     Indication: Squamous cell carcinoma
     Dosage: 285 MG, ONCE EVERY 3 WEEKS
     Route: 041
     Dates: start: 20210409, end: 20210409
  2. PACLITAXEL [Suspect]
     Active Substance: PACLITAXEL
     Dosage: 284 MG, ONCE EVERY 3 WEEKS
     Route: 041
     Dates: start: 20210429, end: 20210429
  3. PACLITAXEL [Suspect]
     Active Substance: PACLITAXEL
     Dosage: 214.8 MG, ONCE EVERY 3 WEEKS
     Route: 041
     Dates: start: 20210520, end: 20210520
  4. PACLITAXEL [Suspect]
     Active Substance: PACLITAXEL
     Dosage: 210 MG, ONCE EVERY 3 WEEKS
     Route: 041
     Dates: start: 20210611, end: 20210611
  5. CARBOPLATIN [Suspect]
     Active Substance: CARBOPLATIN
     Indication: Squamous cell carcinoma
     Dosage: 550 MG, ONCE EVERY 3 WEEKS
     Route: 041
     Dates: start: 20210409, end: 20210409
  6. CARBOPLATIN [Suspect]
     Active Substance: CARBOPLATIN
     Dosage: 450 MG, ONCE EVERY 3 WEEKS
     Route: 041
     Dates: start: 20210429, end: 20210429
  7. CARBOPLATIN [Suspect]
     Active Substance: CARBOPLATIN
     Dosage: 450 MG, ONCE EVERY 3 WEEKS
     Route: 041
     Dates: start: 20210520, end: 20210520
  8. CARBOPLATIN [Suspect]
     Active Substance: CARBOPLATIN
     Dosage: 400 MG, ONCE EVERY 3 WEEKS
     Route: 041
     Dates: start: 20210611, end: 20210611
  9. INVESTIGATIONAL PRODUCT [Suspect]
     Active Substance: INVESTIGATIONAL PRODUCT
     Indication: Squamous cell carcinoma
     Dosage: INTRAVENOUS INFUSION, 1X/3 WEEKS
     Route: 042
     Dates: start: 20210408, end: 20210408
  10. INVESTIGATIONAL PRODUCT [Suspect]
     Active Substance: INVESTIGATIONAL PRODUCT
     Dosage: UNK
     Dates: start: 20210428, end: 20210428
  11. INVESTIGATIONAL PRODUCT [Suspect]
     Active Substance: INVESTIGATIONAL PRODUCT
     Dosage: UNK
     Dates: start: 20210519, end: 20210519
  12. INVESTIGATIONAL PRODUCT [Suspect]
     Active Substance: INVESTIGATIONAL PRODUCT
     Dosage: UNK
     Dates: start: 20210610, end: 20210610
  13. INVESTIGATIONAL PRODUCT [Suspect]
     Active Substance: INVESTIGATIONAL PRODUCT
     Dosage: INTRAVENOUS INFUSION, 1X/2 WEEKS
     Dates: start: 20210701, end: 20210701
  14. INVESTIGATIONAL PRODUCT [Suspect]
     Active Substance: INVESTIGATIONAL PRODUCT
     Dosage: UNK
     Dates: start: 20210714, end: 20210714
  15. INVESTIGATIONAL PRODUCT [Suspect]
     Active Substance: INVESTIGATIONAL PRODUCT
     Dosage: UNK
     Dates: start: 20210729, end: 20210729
  16. INVESTIGATIONAL PRODUCT [Suspect]
     Active Substance: INVESTIGATIONAL PRODUCT
     Dosage: UNK
     Dates: start: 20210812, end: 20210812
  17. PREDNISONE ACETATE [Concomitant]
     Active Substance: PREDNISONE ACETATE
     Dosage: 5 MG, 1X/DAY
     Route: 048
     Dates: start: 20210824, end: 20210924

REACTIONS (2)
  - Death [Fatal]
  - Immune-mediated lung disease [Unknown]

NARRATIVE: CASE EVENT DATE: 20210919
